FAERS Safety Report 15332574 (Version 1)
Quarter: 2018Q3

REPORT INFORMATION
  Report Type: Report from Study
  Country: CA (occurrence: CA)
  Receive Date: 20180830
  Receipt Date: 20180830
  Transmission Date: 20181010
  Serious: Yes (Hospitalization, Other)
  Sender: FDA-Public Use
  Company Number: CA-ROCHE-2123931

PATIENT
  Age: 73 Year
  Sex: Male
  Weight: 110 kg

DRUGS (16)
  1. ACTEMRA [Suspect]
     Active Substance: TOCILIZUMAB
     Indication: STILL^S DISEASE
     Route: 042
     Dates: start: 20160623
  2. ACTEMRA [Suspect]
     Active Substance: TOCILIZUMAB
     Route: 042
     Dates: start: 20160922
  3. ACTEMRA [Suspect]
     Active Substance: TOCILIZUMAB
     Route: 042
     Dates: start: 20180517
  4. PANTOPRAZOLE [Concomitant]
     Active Substance: PANTOPRAZOLE
  5. ATACAND [Concomitant]
     Active Substance: CANDESARTAN CILEXETIL
  6. ENOXAPARIN [Concomitant]
     Active Substance: ENOXAPARIN
     Indication: ANTICOAGULANT THERAPY
  7. ACTEMRA [Suspect]
     Active Substance: TOCILIZUMAB
     Route: 042
     Dates: start: 20161020
  8. NPH INSULIN [Concomitant]
     Active Substance: INSULIN BEEF
  9. EZETIMIBE. [Concomitant]
     Active Substance: EZETIMIBE
  10. FOLIC ACID. [Concomitant]
     Active Substance: FOLIC ACID
  11. ZOPLICONE [Concomitant]
     Active Substance: ZOPICLONE
  12. PREDNISONE. [Concomitant]
     Active Substance: PREDNISONE
  13. METHOTREXATE. [Concomitant]
     Active Substance: METHOTREXATE
  14. PLAQUENIL [Concomitant]
     Active Substance: HYDROXYCHLOROQUINE SULFATE
  15. INSULIN [Concomitant]
     Active Substance: INSULIN NOS
  16. RISEDRONATE [Concomitant]
     Active Substance: RISEDRONATE SODIUM

REACTIONS (10)
  - Abdominal pain [Unknown]
  - Pain in jaw [Not Recovered/Not Resolved]
  - Oropharyngeal pain [Not Recovered/Not Resolved]
  - White blood cell count increased [Not Recovered/Not Resolved]
  - Cholelithiasis [Unknown]
  - Cholecystitis infective [Unknown]
  - Sepsis [Unknown]
  - Neck pain [Not Recovered/Not Resolved]
  - Blood urine present [Unknown]
  - Asthenia [Unknown]

NARRATIVE: CASE EVENT DATE: 201805
